FAERS Safety Report 16132686 (Version 1)
Quarter: 2019Q1

REPORT INFORMATION
  Report Type: Spontaneous
  Country: ES (occurrence: ES)
  Receive Date: 20190329
  Receipt Date: 20190329
  Transmission Date: 20190418
  Serious: Yes (Disabling)
  Sender: FDA-Public Use
  Company Number: ES-SA-2019SA079150

PATIENT
  Age: 56 Year
  Sex: Female

DRUGS (1)
  1. ARAVA [Suspect]
     Active Substance: LEFLUNOMIDE
     Indication: PSORIATIC ARTHROPATHY
     Dosage: 20 MG, QD
     Route: 048
     Dates: start: 20110118, end: 20180111

REACTIONS (1)
  - Amnestic disorder [Recovering/Resolving]

NARRATIVE: CASE EVENT DATE: 20151103
